FAERS Safety Report 10682400 (Version 1)
Quarter: 2014Q4

REPORT INFORMATION
  Report Type: Spontaneous
  Country: US (occurrence: US)
  Receive Date: 20141230
  Receipt Date: 20141230
  Transmission Date: 20150529
  Serious: Yes (Other)
  Sender: FDA-Public Use
  Company Number: US-TEVA-455468USA

PATIENT
  Sex: Female

DRUGS (1)
  1. TRAZODONE [Suspect]
     Active Substance: TRAZODONE HYDROCHLORIDE

REACTIONS (8)
  - Muscle tightness [Unknown]
  - Gait disturbance [Unknown]
  - Vomiting [Unknown]
  - Diarrhoea [Unknown]
  - Agitation [Unknown]
  - Coordination abnormal [Unknown]
  - Serotonin syndrome [Unknown]
  - Nausea [Unknown]
